FAERS Safety Report 4355906-9 (Version None)
Quarter: 2004Q2

REPORT INFORMATION
  Report Type: 
  Country: None (occurrence: None)
  Receive Date: 20040510
  Receipt Date: 20040510
  Transmission Date: 20050107
  Serious: Yes (Life-Threatening)
  Sender: FDA-Public Use
  Company Number: None

PATIENT
  Age: 35 Year
  Sex: Female
  Weight: 108 kg

DRUGS (2)
  1. LEVAQUIN IN DEXTROSE 5% [Suspect]
     Indication: SURGERY
     Dosage: 500 MG IV [1 DOSE]
     Route: 042
     Dates: start: 20040412
  2. LACTATED RINGER'S [Concomitant]

REACTIONS (5)
  - DYSPNOEA [None]
  - ORAL DISCOMFORT [None]
  - PRURITUS GENERALISED [None]
  - SWELLING FACE [None]
  - SWOLLEN TONGUE [None]
